FAERS Safety Report 21021610 (Version 9)
Quarter: 2025Q1

REPORT INFORMATION
  Report Type: Report from Study
  Country: CA (occurrence: CA)
  Receive Date: 20220629
  Receipt Date: 20250225
  Transmission Date: 20250408
  Serious: No
  Sender: ROCHE
  Company Number: CA-ROCHE-2769702

PATIENT
  Sex: Male

DRUGS (1)
  1. OCREVUS [Suspect]
     Active Substance: OCRELIZUMAB
     Indication: Relapsing-remitting multiple sclerosis
     Dosage: 300 MG AT DAY 0 AND 14, THEN 600 MG EVERY 6 MONTH
     Route: 042
     Dates: start: 20180907

REACTIONS (6)
  - Oral herpes [Recovering/Resolving]
  - Malaise [Not Recovered/Not Resolved]
  - Blood immunoglobulin G decreased [Unknown]
  - Off label use [Unknown]
  - Rhinorrhoea [Unknown]
  - Blood immunoglobulin M decreased [Unknown]
